FAERS Safety Report 8604652-1 (Version None)
Quarter: 2012Q3

REPORT INFORMATION
  Report Type: 
  Country: None (occurrence: None)
  Receive Date: 20120820
  Receipt Date: 20120816
  Transmission Date: 20120928
  Serious: Yes (Other)
  Sender: FDA-Public Use
  Company Number: PHEH2012US004664

PATIENT
  Sex: Male

DRUGS (3)
  1. ASPIRIN [Concomitant]
  2. IBUPROFEN [Concomitant]
  3. EXTAVIA [Suspect]
     Indication: MULTIPLE SCLEROSIS
     Dosage: 0.25 MG, QOD
     Route: 058
     Dates: start: 20110517

REACTIONS (11)
  - THINKING ABNORMAL [None]
  - GAIT DISTURBANCE [None]
  - ERYTHEMA [None]
  - FATIGUE [None]
  - MEMORY IMPAIRMENT [None]
  - BALANCE DISORDER [None]
  - FEELING ABNORMAL [None]
  - SPEECH DISORDER [None]
  - EYE PAIN [None]
  - MALAISE [None]
  - INJECTION SITE HAEMORRHAGE [None]
